FAERS Safety Report 5558873-5 (Version None)
Quarter: 2007Q4

REPORT INFORMATION
  Report Type: 
  Country: None (occurrence: None)
  Receive Date: 20071214
  Receipt Date: 20070906
  Transmission Date: 20080405
  Serious: No
  Sender: FDA-Public Use
  Company Number: US-ABBOTT-07P-163-0416793-00

PATIENT
  Sex: Male
  Weight: 75.364 kg

DRUGS (4)
  1. HUMIRA [Suspect]
     Indication: CROHN'S DISEASE
     Route: 058
     Dates: start: 20070831, end: 20070914
  2. HUMIRA [Suspect]
     Route: 058
  3. PHENERGAN HCL [Concomitant]
     Indication: CROHN'S DISEASE
     Route: 048
  4. ATENOLOL [Concomitant]
     Indication: DRUG USE FOR UNKNOWN INDICATION
     Route: 048

REACTIONS (2)
  - RASH [None]
  - RASH PRURITIC [None]
